FAERS Safety Report 9122475 (Version 1)
Quarter: 2013Q1

REPORT INFORMATION
  Report Type: Spontaneous
  Country: US (occurrence: US)
  Receive Date: 20130114
  Receipt Date: 20130114
  Transmission Date: 20140127
  Serious: Yes (Other)
  Sender: FDA-Public Use
  Company Number: US-ELI_LILLY_AND_COMPANY-US201301003292

PATIENT
  Sex: Male

DRUGS (4)
  1. CIALIS [Suspect]
     Indication: ERECTILE DYSFUNCTION
     Dosage: 10 MG, PRN
     Dates: start: 2010, end: 20120710
  2. CIALIS [Suspect]
     Dosage: 10 MG, PRN
     Dates: start: 2012
  3. NIACIN [Concomitant]
     Dosage: 1000 MG, QD
  4. VITAMINS [Concomitant]
     Dosage: 1 DF, UNKNOWN

REACTIONS (2)
  - Prostate cancer [Recovering/Resolving]
  - Drug ineffective [Unknown]
